FAERS Safety Report 7469201-2 (Version None)
Quarter: 2011Q2

REPORT INFORMATION
  Report Type: 
  Country: None (occurrence: None)
  Receive Date: 20110510
  Receipt Date: 20110426
  Transmission Date: 20111010
  Serious: Yes (Hospitalization)
  Sender: FDA-Public Use
  Company Number: US-JNJFOC-20110307908

PATIENT
  Sex: Female
  Weight: 66.23 kg

DRUGS (9)
  1. REMICADE [Suspect]
     Route: 042
  2. CENTRUM SILVER [Concomitant]
  3. VENOFER [Concomitant]
  4. REMICADE [Suspect]
     Indication: CROHN'S DISEASE
     Route: 042
  5. REMICADE [Suspect]
     Route: 042
  6. CALCIUM AND VITAMIN D [Concomitant]
  7. IMURAN [Concomitant]
  8. PRILOSEC [Concomitant]
  9. REMICADE [Suspect]
     Route: 042

REACTIONS (5)
  - PANCREATIC PSEUDOCYST [None]
  - PNEUMONIA [None]
  - CROHN'S DISEASE [None]
  - PANCREATITIS [None]
  - GALLBLADDER DISORDER [None]
